FAERS Safety Report 14872655 (Version 2)
Quarter: 2018Q3

REPORT INFORMATION
  Report Type: Report from Study
  Country: IT (occurrence: IT)
  Receive Date: 20180510
  Receipt Date: 20180716
  Transmission Date: 20181010
  Serious: Yes (Other)
  Sender: FDA-Public Use
  Company Number: IT-ROCHE-2093986

PATIENT
  Age: 78 Year
  Sex: Male

DRUGS (10)
  1. CYCLOPHOSPHAMIDE. [Suspect]
     Active Substance: CYCLOPHOSPHAMIDE
     Dosage: UNK
     Route: 065
  2. VINCRISTINE [Suspect]
     Active Substance: VINCRISTINE
     Indication: WALDENSTROM^S MACROGLOBULINAEMIA
     Route: 065
     Dates: start: 201301, end: 201305
  3. RITUXIMAB. [Suspect]
     Active Substance: RITUXIMAB
     Indication: WALDENSTROM^S MACROGLOBULINAEMIA
     Dosage: ADMINISTERED ALONG WITH OTHER DRUGS (PART OF R?CHOP), AND THEN ADMINISTERED ALONE.
     Route: 065
     Dates: start: 201301, end: 201305
  4. TENOFOVIR [Concomitant]
     Active Substance: TENOFOVIR
  5. DOXORUBICIN [Suspect]
     Active Substance: DOXORUBICIN
     Indication: WALDENSTROM^S MACROGLOBULINAEMIA
     Dosage: UNK
     Route: 065
     Dates: start: 201301, end: 201305
  6. VINCRISTINE [Suspect]
     Active Substance: VINCRISTINE
     Dosage: UNK
     Route: 065
  7. LAMIVUDINE. [Concomitant]
     Active Substance: LAMIVUDINE
     Indication: HEPATITIS B REACTIVATION
     Dosage: 100MG DAILY, STARTED ONE?TWO WEEKS BEFORE CHEMOTHERAPY. PROPHYLAXIS CONTINUED DURING CHEMOTHERAPY
     Route: 065
     Dates: start: 201602, end: 201602
  8. RITUXIMAB. [Suspect]
     Active Substance: RITUXIMAB
     Indication: WALDENSTROM^S MACROGLOBULINAEMIA
     Dosage: ADMINISTERED ALONE.?DATE OF LAST DOSE IN AUG/2014
     Route: 065
     Dates: start: 201305
  9. PREDNISONE. [Suspect]
     Active Substance: PREDNISONE
     Indication: WALDENSTROM^S MACROGLOBULINAEMIA
     Dosage: UNK
     Route: 065
     Dates: start: 201301, end: 201305
  10. CYCLOPHOSPHAMIDE. [Suspect]
     Active Substance: CYCLOPHOSPHAMIDE
     Indication: WALDENSTROM^S MACROGLOBULINAEMIA
     Route: 065
     Dates: start: 201301, end: 201305

REACTIONS (3)
  - Immunosuppression [Not Recovered/Not Resolved]
  - Hepatitis B DNA increased [Recovered/Resolved]
  - Hepatitis B reactivation [Recovering/Resolving]

NARRATIVE: CASE EVENT DATE: 201602
